FAERS Safety Report 4344253-7 (Version None)
Quarter: 2004Q2

REPORT INFORMATION
  Report Type: 
  Country: None (occurrence: None)
  Receive Date: 20040419
  Receipt Date: 20040413
  Transmission Date: 20050107
  Serious: Yes (Hospitalization)
  Sender: FDA-Public Use
  Company Number: A0384655A

PATIENT
  Age: 73 Year
  Sex: Male
  Weight: 72.5302 kg

DRUGS (6)
  1. NICORETTE [Suspect]
     Indication: EX-SMOKER
     Dosage: 4 MG / TRANSBUCCAL
     Route: 002
  2. CARVEDILOL [Concomitant]
  3. BENAZEPRIL HCL [Concomitant]
  4. DIGOXIN [Concomitant]
  5. WARFARIN SODIUM [Concomitant]
  6. STATINS [Concomitant]

REACTIONS (11)
  - ANGINA PECTORIS [None]
  - ASTHENIA [None]
  - CHOKING [None]
  - DEPENDENCE [None]
  - DYSPHAGIA [None]
  - GASTRITIS [None]
  - GASTROOESOPHAGEAL REFLUX DISEASE [None]
  - JOINT DISLOCATION [None]
  - LARYNGEAL DISORDER [None]
  - PEPTIC ULCER [None]
  - TOOTH EROSION [None]
